FAERS Safety Report 8470807-2 (Version None)
Quarter: 2012Q2

REPORT INFORMATION
  Report Type: 
  Country: None (occurrence: None)
  Receive Date: 20120620
  Receipt Date: 20120611
  Transmission Date: 20120825
  Serious: Yes (Hospitalization, Other)
  Sender: FDA-Public Use
  Company Number: 2010JP003969

PATIENT
  Age: 39 Year
  Sex: Female
  Weight: 46 kg

DRUGS (47)
  1. TACROLIMUS [Suspect]
     Indication: LUPUS NEPHRITIS
     Dosage: 30 MG, /D, ORAL  2.0 MG, /D, ORAL ; 2.5 MG, /D, ORAL
     Route: 048
     Dates: start: 20090417, end: 20090507
  2. TACROLIMUS [Suspect]
     Indication: LUPUS NEPHRITIS
     Dosage: 30 MG, /D, ORAL  2.0 MG, /D, ORAL ; 2.5 MG, /D, ORAL
     Route: 048
     Dates: start: 20091102
  3. TACROLIMUS [Suspect]
     Indication: LUPUS NEPHRITIS
     Dosage: 30 MG, /D, ORAL  2.0 MG, /D, ORAL ; 2.5 MG, /D, ORAL
     Route: 048
     Dates: start: 20090508, end: 20090528
  4. LOXONIN (LOXOPROFEN SODIUM) [Concomitant]
  5. OLMESARTAN MEDOXOMIL [Concomitant]
  6. LYRICA [Concomitant]
  7. METHYCOBAL (MECOBALAMIN) [Concomitant]
  8. TANATRIL (IMIDAPRIL HYDROCHLORIDE) [Concomitant]
  9. LAMISIL /00992602/ (TERBINAFINE HYDROCHLORIDE) [Concomitant]
  10. BETAMETHASONE [Suspect]
     Indication: LUPUS NEPHRITIS
     Dosage: SEE IMAGE
     Route: 048
     Dates: start: 20091113, end: 20091119
  11. BETAMETHASONE [Suspect]
     Indication: LUPUS NEPHRITIS
     Dosage: SEE IMAGE
     Route: 048
     Dates: start: 20100611
  12. BETAMETHASONE [Suspect]
     Indication: LUPUS NEPHRITIS
     Dosage: SEE IMAGE
     Route: 048
     Dates: start: 20090508, end: 20090823
  13. BETAMETHASONE [Suspect]
     Indication: LUPUS NEPHRITIS
     Dosage: SEE IMAGE
     Route: 048
     Dates: start: 20090925, end: 20091008
  14. BETAMETHASONE [Suspect]
     Indication: LUPUS NEPHRITIS
     Dosage: SEE IMAGE
     Route: 048
     Dates: start: 20091204, end: 20091217
  15. BETAMETHASONE [Suspect]
     Indication: LUPUS NEPHRITIS
     Dosage: SEE IMAGE
     Route: 048
     Dates: start: 20100416, end: 20100610
  16. BETAMETHASONE [Suspect]
     Indication: LUPUS NEPHRITIS
     Dosage: SEE IMAGE
     Route: 048
     Dates: start: 20090417, end: 20090507
  17. BETAMETHASONE [Suspect]
     Indication: LUPUS NEPHRITIS
     Dosage: SEE IMAGE
     Route: 048
     Dates: start: 20091009, end: 20091112
  18. BETAMETHASONE [Suspect]
     Indication: LUPUS NEPHRITIS
     Dosage: SEE IMAGE
     Route: 048
     Dates: start: 20091218, end: 20100107
  19. BETAMETHASONE [Suspect]
     Indication: LUPUS NEPHRITIS
     Dosage: SEE IMAGE
     Route: 048
     Dates: start: 20100108, end: 20100204
  20. BETAMETHASONE [Suspect]
     Indication: LUPUS NEPHRITIS
     Dosage: SEE IMAGE
     Route: 048
     Dates: start: 20090824, end: 20090924
  21. BETAMETHASONE [Suspect]
     Indication: LUPUS NEPHRITIS
     Dosage: SEE IMAGE
     Route: 048
     Dates: start: 20091120, end: 20091203
  22. BETAMETHASONE [Suspect]
     Indication: LUPUS NEPHRITIS
     Dosage: SEE IMAGE
     Route: 048
     Dates: start: 20100205, end: 20100415
  23. ADALAT [Concomitant]
  24. LIPITOR [Concomitant]
  25. LASIX [Concomitant]
  26. CLARITH (CLARITHOMYCIN) [Concomitant]
  27. RABEPRAZOLE SODIUM [Concomitant]
  28. SULFAMETHOXAZOLE AND TRIMETHOPRIM [Concomitant]
  29. MAGLAX (MAGNESIUM OXIDE) [Concomitant]
  30. ALLOPURINOL [Concomitant]
  31. BIOFERMIN /01617201/ (LACTOMIN) [Concomitant]
  32. LIVALO [Concomitant]
  33. ACTONEL [Concomitant]
  34. CANDESARTAN CILEXETIL [Concomitant]
  35. ANPLAG (SARPOGRELATE HYDROCHLORIDE) [Concomitant]
  36. CLARITIN [Concomitant]
  37. DOXAZOSIN MESYLATE [Concomitant]
  38. SENNOSIDE /00571901/ (SENNOSIDE A+B) [Concomitant]
  39. PRIMPERAN (METCLOPRAMIDE HYDROCHLORIDE) [Concomitant]
  40. TRYPTANOL (AMITRIPTYLINE PAMOATE) [Concomitant]
  41. MUCODYNE (CARBOCISTENE) [Concomitant]
  42. NEUROTROPIN (THIAMINE HYDROCHLORIDE) [Concomitant]
  43. NEORAL [Concomitant]
  44. SHAKUYAKUKANZOUTOU (HERBAL EXTRACT NOS) [Concomitant]
  45. MYSLEE (ZOLPIDEM) [Concomitant]
  46. ATARAX [Concomitant]
  47. RULID (ROXITHROMYCIN) [Concomitant]

REACTIONS (6)
  - SKIN INFECTION [None]
  - UPPER RESPIRATORY TRACT INFLAMMATION [None]
  - ENTEROCOLITIS [None]
  - ACUTE MYOCARDIAL INFARCTION [None]
  - TINEA PEDIS [None]
  - BRONCHITIS CHRONIC [None]
